FAERS Safety Report 6519671-9 (Version None)
Quarter: 2009Q4

REPORT INFORMATION
  Report Type: 
  Country: None (occurrence: None)
  Receive Date: 20091228
  Receipt Date: 20091217
  Transmission Date: 20100525
  Serious: Yes (Other)
  Sender: FDA-Public Use
  Company Number: CA-PFIZER INC-2009312159

PATIENT

DRUGS (1)
  1. CELEBREX [Suspect]

REACTIONS (1)
  - SUBDURAL HAEMATOMA [None]
